FAERS Safety Report 4437715-5 (Version None)
Quarter: 2004Q3

REPORT INFORMATION
  Report Type: 
  Country: None (occurrence: None)
  Receive Date: 20040831
  Receipt Date: 20040219
  Transmission Date: 20050211
  Serious: No
  Sender: FDA-Public Use
  Company Number: US-GLAXOSMITHKLINE-A0499090A

PATIENT
  Age: 9 Year
  Sex: Male

DRUGS (2)
  1. ZOVIRAX [Suspect]
     Dosage: 1APP TWICE PER DAY
     Route: 061
     Dates: start: 20040209, end: 20040211
  2. AMOXICILLIN [Suspect]
     Route: 065
     Dates: start: 20040211

REACTIONS (7)
  - DRY SKIN [None]
  - ERYTHEMA [None]
  - PHARMACEUTICAL PRODUCT COMPLAINT [None]
  - PHARYNGITIS STREPTOCOCCAL [None]
  - RASH [None]
  - VIRAL INFECTION [None]
  - VOMITING [None]
